FAERS Safety Report 16742006 (Version 1)
Quarter: 2019Q3

REPORT INFORMATION
  Report Type: Spontaneous
  Country: GB (occurrence: GB)
  Receive Date: 20190826
  Receipt Date: 20190826
  Transmission Date: 20191005
  Serious: Yes (Other)
  Sender: FDA-Public Use
  Company Number: GB-TEVA-2019-GB-1096219

PATIENT
  Age: 57 Year
  Sex: Male

DRUGS (3)
  1. ZARONTIN [Concomitant]
     Active Substance: ETHOSUXIMIDE
  2. BLOOD PRESSURE MEDICATION [Concomitant]
     Active Substance: UNSPECIFIED INGREDIENT
  3. RISPERIDONE. [Suspect]
     Active Substance: RISPERIDONE
     Dates: start: 2006

REACTIONS (2)
  - Vomiting [Unknown]
  - Gastric cancer [Unknown]
